FAERS Safety Report 25713787 (Version 1)
Quarter: 2025Q3

REPORT INFORMATION
  Report Type: Spontaneous
  Country: US (occurrence: US)
  Receive Date: 20250822
  Receipt Date: 20250822
  Transmission Date: 20251020
  Serious: Yes (Other)
  Sender: BRISTOL-MYERS SQUIBB COMPANY
  Company Number: US-BRISTOL-MYERS SQUIBB COMPANY-2025-115713

PATIENT
  Sex: Male

DRUGS (2)
  1. OPDIVO [Suspect]
     Active Substance: NIVOLUMAB
     Indication: Head and neck cancer
  2. PANITUMUMAB [Suspect]
     Active Substance: PANITUMUMAB
     Indication: Head and neck cancer

REACTIONS (2)
  - Lip and/or oral cavity cancer [Unknown]
  - Off label use [Unknown]
